FAERS Safety Report 6399793-6 (Version None)
Quarter: 2009Q4

REPORT INFORMATION
  Report Type: 
  Country: None (occurrence: None)
  Receive Date: 20091014
  Receipt Date: 20091005
  Transmission Date: 20100525
  Serious: Yes (Other)
  Sender: FDA-Public Use
  Company Number: AU-PFIZER INC-2009282462

PATIENT
  Age: 53 Year

DRUGS (11)
  1. ZIDOVUDINE [Suspect]
     Indication: HIV INFECTION
  2. NELFINAVIR MESILATE [Suspect]
     Indication: HIV INFECTION
  3. LAMIVUDINE [Suspect]
     Indication: HIV INFECTION
  4. NEVIRAPINE [Suspect]
     Indication: HIV INFECTION
  5. DIDANOSINE [Suspect]
     Indication: HIV INFECTION
  6. EFAVIRENZ [Suspect]
     Indication: HIV INFECTION
  7. EMTRICITABINE [Suspect]
     Indication: HIV INFECTION
  8. RITONAVIR [Suspect]
     Indication: HIV INFECTION
  9. SAQUINAVIR [Suspect]
     Indication: HIV INFECTION
  10. ATAZANAVIR [Suspect]
     Indication: HIV INFECTION
  11. TENOFOVIR [Suspect]
     Indication: HIV INFECTION

REACTIONS (1)
  - PARKINSON'S DISEASE [None]
